FAERS Safety Report 10120860 (Version 2)
Quarter: 2014Q2

REPORT INFORMATION
  Report Type: Spontaneous
  Country: AR (occurrence: AR)
  Receive Date: 20140425
  Receipt Date: 20140506
  Transmission Date: 20141212
  Serious: Yes (Hospitalization, Other)
  Sender: FDA-Public Use
  Company Number: AR-NOVOPROD-407333

PATIENT
  Sex: Male
  Weight: 5 kg

DRUGS (3)
  1. NOVORAPID FLEXPEN [Suspect]
     Indication: TYPE 2 DIABETES MELLITUS
     Dosage: 4 IU, QD
     Route: 064
     Dates: start: 20131217
  2. NOVORAPID FLEXPEN [Suspect]
     Dosage: 7 IU, QD
     Route: 064
     Dates: start: 20131226
  3. INSULATARD FLEXPEN [Suspect]
     Indication: TYPE 2 DIABETES MELLITUS
     Dosage: 3 IU, QD
     Route: 064
     Dates: start: 20131217

REACTIONS (6)
  - Cardiac murmur [Unknown]
  - Testicular disorder [Unknown]
  - Developmental delay [Unknown]
  - Blood glucose decreased [Recovered/Resolved]
  - Vomiting [Unknown]
  - Foetal exposure during pregnancy [Recovered/Resolved]
